FAERS Safety Report 6252199-2 (Version None)
Quarter: 2009Q2

REPORT INFORMATION
  Report Type: 
  Country: None (occurrence: None)
  Receive Date: 20090629
  Receipt Date: 20081203
  Transmission Date: 20091009
  Serious: Yes (Death)
  Sender: FDA-Public Use
  Company Number: TOR 2009-0042

PATIENT
  Age: 72 Year
  Sex: Female

DRUGS (1)
  1. FARESTON [Suspect]
     Indication: BREAST CANCER FEMALE
     Dosage: 120 MG, ORAL
     Route: 048
     Dates: start: 20080917, end: 20081120

REACTIONS (1)
  - PNEUMONIA ASPIRATION [None]
